FAERS Safety Report 18250583 (Version 1)
Quarter: 2020Q3

REPORT INFORMATION
  Report Type: Report from Study
  Country: CH (occurrence: CH)
  Receive Date: 20200910
  Receipt Date: 20200910
  Transmission Date: 20201103
  Serious: Yes (Other)
  Sender: FDA-Public Use
  Company Number: CH-ALK-ABELLO A/S-2020AA002585

PATIENT

DRUGS (1)
  1. PHARMALGEN APIS MELLIFERA [Suspect]
     Active Substance: APIS MELLIFERA
     Indication: ALLERGY TO VENOM
     Dosage: 20 MICROGRAM

REACTIONS (3)
  - Off label use [Unknown]
  - Hypersensitivity [Unknown]
  - Intentional product use issue [Unknown]
